FAERS Safety Report 9659288 (Version 2)
Quarter: 2013Q4

REPORT INFORMATION
  Report Type: Spontaneous
  Country: DE (occurrence: DE)
  Receive Date: 20131031
  Receipt Date: 20131113
  Transmission Date: 20140711
  Serious: Yes (Other)
  Sender: FDA-Public Use
  Company Number: DE-AMGEN-DEUSP2013076841

PATIENT
  Age: 69 Year
  Sex: Female
  Weight: 50 kg

DRUGS (3)
  1. ENBREL [Suspect]
     Indication: PRODUCT USED FOR UNKNOWN INDICATION
     Dosage: 50 MG, WEEKLY
     Route: 065
     Dates: start: 2004, end: 201310
  2. VANIQA                             /00936001/ [Concomitant]
     Dosage: UNK
     Route: 061
  3. ARCOXIA [Concomitant]
     Dosage: 90 MG, AS NEEDED
     Dates: start: 2009

REACTIONS (13)
  - Alpha 1 globulin increased [Unknown]
  - Alpha 2 globulin increased [Unknown]
  - Blood cholesterol increased [Unknown]
  - C-reactive protein increased [Unknown]
  - Gamma-glutamyltransferase increased [Unknown]
  - Haemoglobin increased [Unknown]
  - Haematocrit increased [Unknown]
  - Red blood cell count increased [Unknown]
  - Interleukin level increased [Unknown]
  - Blood iron decreased [Unknown]
  - Transferrin saturation decreased [Unknown]
  - Protein total decreased [Unknown]
  - Basal cell carcinoma [Unknown]
